FAERS Safety Report 25985512 (Version 1)
Quarter: 2025Q4

REPORT INFORMATION
  Report Type: Spontaneous
  Country: US (occurrence: US)
  Receive Date: 20251031
  Receipt Date: 20251031
  Transmission Date: 20260118
  Serious: Yes (Other)
  Sender: AMGEN
  Company Number: US-AMGEN-USASP2025205906

PATIENT
  Age: 34 Year
  Sex: Female

DRUGS (17)
  1. APREMILAST [Suspect]
     Active Substance: APREMILAST
     Indication: Benign familial pemphigus
     Dosage: UNK
     Route: 065
  2. APREMILAST [Suspect]
     Active Substance: APREMILAST
     Indication: Off label use
  3. PREDNISONE [Suspect]
     Active Substance: PREDNISONE
     Indication: Benign familial pemphigus
     Dosage: UNK
     Route: 065
  4. PREDNISONE [Suspect]
     Active Substance: PREDNISONE
     Indication: Off label use
  5. CALCIPOTRIENE [Concomitant]
     Active Substance: CALCIPOTRIENE
  6. CLOBETASOL [Concomitant]
     Active Substance: CLOBETASOL
  7. MUPIROCIN [Concomitant]
     Active Substance: MUPIROCIN
  8. AMOXICILLIN [Concomitant]
     Active Substance: AMOXICILLIN
  9. TAZAROTENE [Concomitant]
     Active Substance: TAZAROTENE
  10. AMOXICILLIN\CLAVULANIC ACID [Concomitant]
     Active Substance: AMOXICILLIN\CLAVULANIC ACID
  11. CEPHALEXIN [Concomitant]
     Active Substance: CEPHALEXIN
  12. DAPSONE [Concomitant]
     Active Substance: DAPSONE
  13. MINOCYCLINE [Concomitant]
     Active Substance: MINOCYCLINE HYDROCHLORIDE
  14. GLYCOPYRROLATE [Concomitant]
     Active Substance: GLYCOPYRROLATE
  15. NALTREXONE [Concomitant]
     Active Substance: NALTREXONE
  16. NICOTINAMIDE [Concomitant]
     Active Substance: NIACINAMIDE
  17. MAGNESIUM [Concomitant]
     Active Substance: MAGNESIUM

REACTIONS (6)
  - Eczema herpeticum [Unknown]
  - Deep vein thrombosis [Unknown]
  - Impetigo [Unknown]
  - Drug effective for unapproved indication [Unknown]
  - Off label use [Unknown]
  - Benign familial pemphigus [Unknown]
